FAERS Safety Report 23798918 (Version 1)
Quarter: 2024Q2

REPORT INFORMATION
  Report Type: Spontaneous
  Country: US (occurrence: None)
  Receive Date: 20240427
  Receipt Date: 20240427
  Transmission Date: 20240716
  Serious: Yes (Hospitalization)
  Sender: FDA-Public Use
  Company Number: None

PATIENT
  Age: 76 Year
  Sex: Male

DRUGS (1)
  1. BACLOFEN [Suspect]
     Active Substance: BACLOFEN
     Indication: Pain
     Route: 048
     Dates: start: 20221121, end: 20230306

REACTIONS (8)
  - Agitation [None]
  - Confusional state [None]
  - Delirium [None]
  - Vomiting [None]
  - Extra dose administered [None]
  - Nausea [None]
  - Blood pressure systolic increased [None]
  - Mental status changes [None]

NARRATIVE: CASE EVENT DATE: 20230309
